FAERS Safety Report 5450473-0 (Version None)
Quarter: 2007Q3

REPORT INFORMATION
  Report Type: 
  Country: None (occurrence: None)
  Receive Date: 20070912
  Receipt Date: 20070831
  Transmission Date: 20080115
  Serious: No
  Sender: FDA-Public Use
  Company Number: US-BOEHRINGER INGELHEIM PHARMACEUTICALS, INC.-2007-BP-19738BP

PATIENT
  Sex: Female

DRUGS (6)
  1. CATAPRES-TTS-1 [Suspect]
     Indication: HYPERTENSION
     Route: 061
     Dates: start: 20070522
  2. NORVASC [Concomitant]
     Indication: HYPERTENSION
  3. EDECRIN [Concomitant]
     Indication: OEDEMA
  4. NEXIUM [Concomitant]
  5. DYNACIRC CR [Concomitant]
  6. ALPRAZOLAM [Concomitant]

REACTIONS (5)
  - ERYTHEMA [None]
  - MUSCLE SWELLING [None]
  - MYALGIA [None]
  - NEURALGIA [None]
  - OEDEMA PERIPHERAL [None]
